FAERS Safety Report 19773584 (Version 1)
Quarter: 2021Q3

REPORT INFORMATION
  Report Type: Report from Study
  Country: None (occurrence: LU)
  Receive Date: 20210901
  Receipt Date: 20210901
  Transmission Date: 20211014
  Serious: Yes (Hospitalization)
  Sender: FDA-Public Use
  Company Number: LU-ABBVIE-21K-098-4058221-00

PATIENT
  Sex: Male
  Weight: 85 kg

DRUGS (13)
  1. DUODOPA [Suspect]
     Active Substance: CARBIDOPA\LEVODOPA
     Dosage: MD 11.0 ML; CD 4.8ML/H; ED 1.0 ML; DURING 16 HRS
     Route: 050
     Dates: start: 20210413
  2. PROLOPA [Concomitant]
     Active Substance: BENSERAZIDE\LEVODOPA
     Indication: PRODUCT USED FOR UNKNOWN INDICATION
     Dosage: AT 11.00(1) AT15.00(1), AT17.00(1 OU2), AT 20.00 (1)?AT 06.00 (1OR 2), AT 09.00 (1OR 2),
  3. PROLOPA HBS [Concomitant]
     Active Substance: BENSERAZIDE\LEVODOPA
     Dosage: AT 22.00
  4. SINGULAIR [Concomitant]
     Active Substance: MONTELUKAST SODIUM
     Indication: PRODUCT USED FOR UNKNOWN INDICATION
     Dosage: AT 22.00
  5. FOLAVIT [Concomitant]
     Active Substance: FOLIC ACID
     Indication: PRODUCT USED FOR UNKNOWN INDICATION
     Dosage: 1?AT MORNING
  6. DUODOPA [Suspect]
     Active Substance: CARBIDOPA\LEVODOPA
     Indication: PARKINSON^S DISEASE
     Dosage: MD 10.0 ML; CD 4.7ML/H; ED 1.0 ML; DURING 16 HRS
     Route: 050
     Dates: start: 20210224, end: 20210413
  7. ATROVENT HFA [Concomitant]
     Active Substance: IPRATROPIUM BROMIDE
     Indication: PRODUCT USED FOR UNKNOWN INDICATION
  8. LIPITOR [Concomitant]
     Active Substance: ATORVASTATIN CALCIUM
     Indication: PRODUCT USED FOR UNKNOWN INDICATION
     Dosage: 1?AT NIGHT
  9. COZAAR [Concomitant]
     Active Substance: LOSARTAN POTASSIUM
     Indication: PRODUCT USED FOR UNKNOWN INDICATION
     Dosage: 0,5?AT MORNING
  10. MIRAPEXIN [Concomitant]
     Active Substance: PRAMIPEXOLE
     Indication: PRODUCT USED FOR UNKNOWN INDICATION
     Dosage: 1?AT MORNING
  11. LASIX [Concomitant]
     Active Substance: FUROSEMIDE
     Indication: PRODUCT USED FOR UNKNOWN INDICATION
     Dosage: 0.5?AT MORNING
  12. PROLOPA HBS [Concomitant]
     Active Substance: BENSERAZIDE\LEVODOPA
     Indication: PRODUCT USED FOR UNKNOWN INDICATION
     Dosage: AT 15.00
  13. ELIQUIS [Concomitant]
     Active Substance: APIXABAN
     Indication: PRODUCT USED FOR UNKNOWN INDICATION
     Dosage: 1 AT MORNING, 1 AT EVENING

REACTIONS (7)
  - Device dislocation [Unknown]
  - Muscular weakness [Unknown]
  - Therapeutic product effect decreased [Unknown]
  - Abdominal distension [Unknown]
  - Gait inability [Unknown]
  - General physical health deterioration [Unknown]
  - Abdominal pain [Unknown]

NARRATIVE: CASE EVENT DATE: 2021
